FAERS Safety Report 5518771-X (Version None)
Quarter: 2007Q4

REPORT INFORMATION
  Report Type: 
  Country: None (occurrence: None)
  Receive Date: 20071115
  Receipt Date: 20071101
  Transmission Date: 20080405
  Serious: Yes (Disabling, Other)
  Sender: FDA-Public Use
  Company Number: GB-RANBAXY-2007RR-11228

PATIENT

DRUGS (2)
  1. DICLOFENAC SODIUM TABLETS 25MG [Suspect]
     Dosage: 50 MG, TID
     Route: 048
     Dates: start: 20071013, end: 20071016
  2. IBUPROFEN [Suspect]
     Dosage: 400 MG, TID
     Route: 048
     Dates: start: 20071013, end: 20071016

REACTIONS (1)
  - NEPHRITIS INTERSTITIAL [None]
